FAERS Safety Report 12070344 (Version 1)
Quarter: 2016Q1

REPORT INFORMATION
  Report Type: Spontaneous
  Country: CH (occurrence: FR)
  Receive Date: 20160211
  Receipt Date: 20160211
  Transmission Date: 20160526
  Serious: Yes (Hospitalization)
  Sender: FDA-Public Use
  Company Number: CH-LPDUSPRD-20160116

PATIENT
  Age: 38 Year
  Sex: Female

DRUGS (3)
  1. FERINJECT [Suspect]
     Active Substance: FERRIC CARBOXYMALTOSE
     Dosage: 1 GM/150 ML UNSPEC DILUTENT
     Route: 042
     Dates: start: 20160115, end: 20160115
  2. PLAQUENIL [Concomitant]
     Active Substance: HYDROXYCHLOROQUINE SULFATE
     Dosage: DOSE NOT PROVIDED
     Route: 065
  3. TRIATEC [Concomitant]
     Active Substance: RAMIPRIL
     Dosage: DOSE NOT PROVIDED
     Route: 065

REACTIONS (4)
  - Seizure [Recovered/Resolved]
  - Asthenia [Recovered/Resolved]
  - Cataplexy [Recovered/Resolved]
  - Hypertension [Recovered/Resolved]

NARRATIVE: CASE EVENT DATE: 20160115
